FAERS Safety Report 9315998 (Version 1)
Quarter: 2013Q2

REPORT INFORMATION
  Report Type: Report from Study
  Country: CN (occurrence: CN)
  Receive Date: 20130530
  Receipt Date: 20130530
  Transmission Date: 20140414
  Serious: Yes (Death)
  Sender: FDA-Public Use
  Company Number: CN-ROCHE-1230417

PATIENT
  Age: 49 Year
  Sex: Male

DRUGS (3)
  1. CELLCEPT [Suspect]
     Indication: LIVER TRANSPLANT
     Route: 048
     Dates: start: 20130328
  2. PROGRAF [Concomitant]
     Indication: LIVER TRANSPLANT
  3. CORTISOL [Concomitant]
     Indication: LIVER TRANSPLANT

REACTIONS (1)
  - Death [Fatal]
